FAERS Safety Report 5197200-2 (Version None)
Quarter: 2007Q1

REPORT INFORMATION
  Report Type: 
  Country: None (occurrence: None)
  Receive Date: 20070103
  Receipt Date: 20061220
  Transmission Date: 20070707
  Serious: Yes (Other)
  Sender: FDA-Public Use
  Company Number: JP-ELI_LILLY_AND_COMPANY-JP200610002642

PATIENT
  Age: 76 Year
  Sex: Female
  Weight: 53 kg

DRUGS (4)
  1. ALFAROL [Concomitant]
     Indication: OSTEOPOROSIS
     Dosage: 1 UG, DAILY (1/D)
     Route: 048
     Dates: start: 20050202
  2. BEZATOL - SLOW RELEASE [Concomitant]
     Indication: HYPERLIPIDAEMIA
     Dosage: 200 MG, 2/D
     Route: 048
     Dates: start: 20051206
  3. MEVALOTIN                               /JPN/ [Concomitant]
     Route: 048
  4. EVISTA [Suspect]
     Indication: OSTEOPOROSIS

REACTIONS (4)
  - DEEP VEIN THROMBOSIS [None]
  - FIBRIN D DIMER INCREASED [None]
  - PAIN IN EXTREMITY [None]
  - RETINAL HAEMORRHAGE [None]
